FAERS Safety Report 24558125 (Version 2)
Quarter: 2024Q4

REPORT INFORMATION
  Report Type: Report from Study
  Country: US (occurrence: US)
  Receive Date: 20241028
  Receipt Date: 20241205
  Transmission Date: 20250114
  Serious: No
  Sender: LUNDBECK
  Company Number: US-LUNDBECK-DKLU4005290

PATIENT

DRUGS (1)
  1. VYEPTI [Suspect]
     Active Substance: EPTINEZUMAB-JJMR
     Indication: Migraine
     Dosage: FOR BETWEEN 1-2 YEARS
     Route: 041

REACTIONS (3)
  - Gastritis [Unknown]
  - Insomnia [Unknown]
  - Dizziness [Unknown]
